FAERS Safety Report 5468084-X (Version None)
Quarter: 2007Q3

REPORT INFORMATION
  Report Type: 
  Country: None (occurrence: None)
  Receive Date: 20070926
  Receipt Date: 20070330
  Transmission Date: 20080115
  Serious: Yes (Death, Other)
  Sender: FDA-Public Use
  Company Number: US-ASTRAZENECA-2006UW21558

PATIENT
  Sex: Male
  Weight: 156.4 kg

DRUGS (10)
  1. SEROQUEL [Suspect]
     Indication: SCHIZOPHRENIA
     Route: 048
  2. CLOZARIL [Concomitant]
  3. GEODON [Concomitant]
  4. HALDOL [Concomitant]
  5. NAVANE [Concomitant]
  6. RISPERDAL [Concomitant]
  7. STELAZINE [Concomitant]
  8. THORAZINE [Concomitant]
  9. TRILAFON/TRIAVIL [Concomitant]
  10. ZYPREXA/SYMBYAX [Concomitant]

REACTIONS (4)
  - ACUTE MYOCARDIAL INFARCTION [None]
  - CORONARY ARTERY DISEASE [None]
  - HYPERTENSION [None]
  - TARDIVE DYSKINESIA [None]
